FAERS Safety Report 18878886 (Version 2)
Quarter: 2021Q1

REPORT INFORMATION
  Report Type: Other
  Country: AU (occurrence: AU)
  Receive Date: 20210211
  Receipt Date: 20210308
  Transmission Date: 20210420
  Serious: Yes (Other)
  Sender: FDA-Public Use
  Company Number: AU-ROCHE-2762052

PATIENT

DRUGS (11)
  1. METHOTREXATE. [Suspect]
     Active Substance: METHOTREXATE
     Indication: MYELODYSPLASTIC SYNDROME
     Dosage: DAYS 3, 6 AND 11
     Route: 065
  2. TOCILIZUMAB. [Suspect]
     Active Substance: TOCILIZUMAB
     Indication: ACUTE LEUKAEMIA
     Dosage: OVER 60 MINS
     Route: 042
  3. METHOTREXATE. [Suspect]
     Active Substance: METHOTREXATE
     Indication: ACUTE LEUKAEMIA
     Dosage: +1 DAY
     Route: 065
  4. PROMETHAZINE [Concomitant]
     Active Substance: PROMETHAZINE HYDROCHLORIDE
     Route: 042
  5. ACYCLOVIR. [Concomitant]
     Active Substance: ACYCLOVIR
  6. CYCLOSPORINE. [Suspect]
     Active Substance: CYCLOSPORINE
     Indication: ACUTE LEUKAEMIA
     Dosage: DAY ?1 TILL +1
     Route: 065
  7. COTRIMOXAZOLE [Concomitant]
     Active Substance: SULFAMETHOXAZOLE\TRIMETHOPRIM
     Indication: PROPHYLAXIS
  8. TOCILIZUMAB. [Suspect]
     Active Substance: TOCILIZUMAB
     Indication: MYELODYSPLASTIC SYNDROME
  9. CYCLOSPORINE. [Suspect]
     Active Substance: CYCLOSPORINE
     Indication: MYELODYSPLASTIC SYNDROME
     Dosage: MAINTAIN THERAPEUTIC LEVELS (TROUGH LEVELS OF 140?300NG/ML) FOR A RECOMMENDED MINIMUM OF 100 DAYS (W
     Route: 065
  10. PARACETAMOL [Concomitant]
     Active Substance: ACETAMINOPHEN
     Route: 048
  11. VALACICLOVIR [Concomitant]
     Active Substance: VALACYCLOVIR HYDROCHLORIDE

REACTIONS (16)
  - Cytomegalovirus infection reactivation [Unknown]
  - Adenovirus infection [Unknown]
  - BK virus infection [Unknown]
  - Parainfluenzae virus infection [Unknown]
  - Herpes simplex [Unknown]
  - Respiratory syncytial virus infection [Unknown]
  - Hepatotoxicity [Unknown]
  - Bacteraemia [Unknown]
  - Cellulitis [Unknown]
  - Upper respiratory tract infection [Unknown]
  - Bacterial infection [Unknown]
  - Influenza [Unknown]
  - Pneumonia [Unknown]
  - Rotavirus infection [Unknown]
  - Fungal infection [Unknown]
  - Urosepsis [Unknown]
